FAERS Safety Report 9112936 (Version 2)
Quarter: 2013Q2

REPORT INFORMATION
  Report Type: Spontaneous
  Country: DK (occurrence: DK)
  Receive Date: 20130211
  Receipt Date: 20130530
  Transmission Date: 20140414
  Serious: Yes (Death)
  Sender: FDA-Public Use
  Company Number: DK-ROCHE-1189538

PATIENT
  Age: 63 Year
  Sex: Female
  Weight: 63 kg

DRUGS (3)
  1. AVASTIN [Suspect]
     Indication: NON-SMALL CELL LUNG CANCER
     Dosage: BETWEEN 525 AND 470 MG EVERY THIRD WEEK, STRENGTH: 25 MG/ML
     Route: 065
     Dates: start: 20120904, end: 20130102
  2. CARBOPLATIN [Concomitant]
     Indication: NON-SMALL CELL LUNG CANCER
     Dosage: 6 SERIES
     Route: 065
     Dates: start: 20120904, end: 20130102
  3. NAVELBINE [Concomitant]
     Indication: NON-SMALL CELL LUNG CANCER
     Dosage: 6 SERIES
     Route: 065
     Dates: start: 20120904, end: 20130102

REACTIONS (2)
  - Haemoptysis [Fatal]
  - Cardiac arrest [Fatal]
